FAERS Safety Report 25723390 (Version 1)
Quarter: 2025Q3

REPORT INFORMATION
  Report Type: Spontaneous
  Country: US (occurrence: US)
  Receive Date: 20250825
  Receipt Date: 20250825
  Transmission Date: 20251020
  Serious: Yes (Other)
  Sender: Alpha Cognition
  Company Number: US-CLIENT-2025-ZUN-00021

PATIENT

DRUGS (1)
  1. ZUNVEYL [Suspect]
     Active Substance: GALANTAMINE BENZOATE
     Indication: Product used for unknown indication
     Route: 065
     Dates: start: 20250807

REACTIONS (1)
  - Psychotic disorder [Unknown]

NARRATIVE: CASE EVENT DATE: 20250801
